FAERS Safety Report 4470116-2 (Version None)
Quarter: 2004Q3

REPORT INFORMATION
  Report Type: 
  Country: None (occurrence: None)
  Receive Date: 20040910
  Receipt Date: 20040805
  Transmission Date: 20050211
  Serious: No
  Sender: FDA-Public Use
  Company Number: 2004-00323

PATIENT
  Age: 63 Year
  Sex: Male
  Weight: 80.7 kg

DRUGS (4)
  1. VELCADE [Suspect]
     Indication: MULTIPLE MYELOMA
     Dosage: 1.30 MG/M2 INTRAVENOUS
     Route: 042
     Dates: start: 20040727
  2. VASOTEC [Concomitant]
  3. PREVACID [Concomitant]
  4. ZYRTEC [Concomitant]

REACTIONS (2)
  - OLIGURIA [None]
  - WEIGHT INCREASED [None]
